FAERS Safety Report 6963741-8 (Version None)
Quarter: 2010Q3

REPORT INFORMATION
  Report Type: 
  Country: None (occurrence: None)
  Receive Date: 20100902
  Receipt Date: 20100825
  Transmission Date: 20110219
  Serious: Yes (Hospitalization, Other)
  Sender: FDA-Public Use
  Company Number: US-CELGENEUS-163-20785-10082509

PATIENT
  Age: 76 Year
  Sex: Female
  Weight: 66.5 kg

DRUGS (8)
  1. THALOMID [Suspect]
     Route: 048
     Dates: start: 20100520
  2. THALOMID [Suspect]
     Route: 048
     Dates: start: 20100729
  3. MELPHALAN [Suspect]
     Route: 048
     Dates: start: 20100520, end: 20100523
  4. MELPHALAN [Suspect]
     Route: 048
     Dates: start: 20100729
  5. PREDNISONE [Suspect]
     Route: 048
     Dates: start: 20100520
  6. PREDNISONE [Suspect]
     Route: 048
     Dates: start: 20100729
  7. ZOMETA [Suspect]
     Indication: PRODUCT USED FOR UNKNOWN INDICATION
     Route: 065
  8. ASPIRIN [Concomitant]
     Indication: PRODUCT USED FOR UNKNOWN INDICATION
     Route: 048
     Dates: start: 20100520

REACTIONS (3)
  - ATRIAL FLUTTER [None]
  - RENAL FAILURE [None]
  - SEPSIS [None]
